FAERS Safety Report 16792200 (Version 1)
Quarter: 2019Q3

REPORT INFORMATION
  Report Type: Spontaneous
  Country: IT (occurrence: IT)
  Receive Date: 20190910
  Receipt Date: 20190910
  Transmission Date: 20191005
  Serious: Yes (Other)
  Sender: FDA-Public Use
  Company Number: IT-THROMBOGENICS INC-IT-O18021-19-001688

PATIENT

DRUGS (1)
  1. JETREA [Suspect]
     Active Substance: OCRIPLASMIN
     Indication: MACULOPATHY
     Dosage: 0.12 MILLIGRAM, SINGLE
     Route: 031
     Dates: start: 20190722, end: 20190722

REACTIONS (1)
  - Detachment of macular retinal pigment epithelium [Unknown]

NARRATIVE: CASE EVENT DATE: 20190723
